FAERS Safety Report 9490500 (Version 9)
Quarter: 2014Q1

REPORT INFORMATION
  Report Type: Report from Study
  Country: GB (occurrence: GB)
  Receive Date: 20130830
  Receipt Date: 20140324
  Transmission Date: 20141002
  Serious: Yes (Hospitalization)
  Sender: FDA-Public Use
  Company Number: GB-ROCHE-1266977

PATIENT
  Age: 50 Year
  Sex: Female

DRUGS (35)
  1. PERTUZUMAB [Suspect]
     Indication: HER-2 POSITIVE BREAST CANCER
     Dosage: LOADING DOSE LAST DOSE PRIOR TO SAE WAS 15/AUG/2013
     Route: 042
     Dates: start: 20130815, end: 20130815
  2. PERTUZUMAB [Suspect]
     Indication: BREAST CANCER
     Dosage: MAINTENANCE DOSE AS PER PROTOCOL
     Route: 042
  3. TRASTUZUMAB [Suspect]
     Indication: HER-2 POSITIVE BREAST CANCER
     Dosage: 8MG/KG AS PER PROTOCOL LAST DOSE PRIOR TO SAE WAS 15/AUG/2013
     Route: 042
     Dates: start: 20130815, end: 20130815
  4. TRASTUZUMAB [Suspect]
     Indication: BREAST CANCER
     Route: 042
  5. DOCETAXEL [Suspect]
     Indication: HER-2 POSITIVE BREAST CANCER
     Dosage: MOST RECENT DOSE PRIOR TO SAE: 16/AUG/2013
     Route: 042
     Dates: start: 20130816
  6. DOCETAXEL [Suspect]
     Indication: BREAST CANCER
  7. IMODIUM [Concomitant]
     Route: 065
     Dates: start: 20130819, end: 20130819
  8. TRAMADOL [Concomitant]
     Dosage: 50-100
     Route: 065
     Dates: start: 2013, end: 20130813
  9. TRAMADOL [Concomitant]
     Dosage: 200-400 MG
     Route: 065
     Dates: start: 20130822, end: 20130822
  10. BUSCOPAN [Concomitant]
     Dosage: 10-20 MG
     Route: 065
     Dates: start: 20130822, end: 20130822
  11. OMEPRAZOLE [Concomitant]
     Route: 065
     Dates: start: 20101101, end: 20130822
  12. OMEPRAZOLE [Concomitant]
     Route: 065
     Dates: start: 20130822
  13. GABAPENTIN [Concomitant]
     Route: 065
     Dates: start: 20111001
  14. NAPROXEN [Concomitant]
     Route: 065
     Dates: start: 201202, end: 20130813
  15. CERELLE [Concomitant]
     Dosage: MINI PILL
     Route: 065
     Dates: start: 2007, end: 20130918
  16. DEXAMETHASONE [Concomitant]
     Indication: PROPHYLAXIS OF NAUSEA AND VOMITING
     Route: 065
     Dates: start: 20130814, end: 20130816
  17. DEXAMETHASONE [Concomitant]
     Route: 065
     Dates: start: 20130815
  18. DOMPERIDONE [Concomitant]
     Dosage: 30-60MGS
     Route: 065
     Dates: start: 20130815
  19. LENOGRASTIM [Concomitant]
     Route: 065
     Dates: start: 20130818, end: 20130822
  20. CIPROFLOXACIN [Concomitant]
     Route: 065
     Dates: start: 20130823, end: 20130827
  21. CIPROFLOXACIN [Concomitant]
     Route: 065
     Dates: start: 20130903, end: 20130910
  22. CIPROFLOXACIN [Concomitant]
     Route: 065
     Dates: start: 20131015
  23. ACICLOVIR [Concomitant]
     Indication: BONE PAIN
     Route: 065
     Dates: start: 20130822, end: 20130827
  24. DESOGESTREL [Concomitant]
  25. DIFFLAM [Concomitant]
     Route: 065
     Dates: start: 20130912
  26. COD LIVER OIL [Concomitant]
     Route: 065
     Dates: start: 20030101
  27. EVENING PRIMROSE OIL [Concomitant]
     Route: 065
     Dates: start: 20030101
  28. ECHINACEA [Concomitant]
     Route: 065
     Dates: start: 20030101
  29. IBUPROFEN [Concomitant]
     Route: 065
     Dates: start: 20130923
  30. PARACETAMOL [Concomitant]
     Route: 065
     Dates: start: 20130905, end: 20130927
  31. PARACETAMOL [Concomitant]
     Route: 065
     Dates: start: 20131016
  32. ALVERINE CITRATE [Concomitant]
     Route: 065
     Dates: start: 20130827
  33. METROGEL [Concomitant]
     Route: 061
     Dates: start: 20130827, end: 20130923
  34. ONDANSETRON [Concomitant]
     Indication: PROPHYLAXIS OF NAUSEA AND VOMITING
     Route: 065
     Dates: start: 20130827, end: 20130902
  35. PHENOXYMETHYL PENICILLIN [Concomitant]
     Route: 065
     Dates: start: 201308

REACTIONS (1)
  - Neutropenic sepsis [Recovered/Resolved]
